FAERS Safety Report 5110347-1 (Version None)
Quarter: 2006Q3

REPORT INFORMATION
  Report Type: 
  Country: None (occurrence: None)
  Receive Date: 20060921
  Receipt Date: 20060911
  Transmission Date: 20061208
  Serious: Yes (Other)
  Sender: FDA-Public Use
  Company Number: PHBS2006CL13829

PATIENT
  Age: 24 Year
  Sex: Female

DRUGS (4)
  1. CYCLOSPORINE [Suspect]
     Indication: IMPETIGO HERPETIFORMIS
     Dosage: 1.25 MG/KG, BID
     Route: 048
  2. PREDNISONE [Concomitant]
     Dosage: 60 MG/D
     Route: 048
  3. PREDNISONE [Concomitant]
     Dosage: 20 MG/D
     Route: 048
  4. INSULIN [Concomitant]

REACTIONS (3)
  - CAESAREAN SECTION [None]
  - DEPRESSION [None]
  - DRUG EXPOSURE DURING PREGNANCY [None]
